FAERS Safety Report 6892796-4 (Version None)
Quarter: 2010Q3

REPORT INFORMATION
  Report Type: 
  Country: None (occurrence: None)
  Receive Date: 20100731
  Receipt Date: 20080923
  Transmission Date: 20110219
  Serious: No
  Sender: FDA-Public Use
  Company Number: US-PFIZER INC-2008064043

PATIENT
  Sex: Female
  Weight: 78.93 kg

DRUGS (7)
  1. NEURONTIN [Suspect]
     Indication: FIBROMYALGIA
     Route: 048
     Dates: start: 20080123
  2. NEURONTIN [Suspect]
     Indication: PAIN
  3. VICODIN [Concomitant]
     Dosage: 500/5MG 1.5TABLETS DAILY
  4. FLEXERIL [Concomitant]
  5. IBUPROFEN TABLETS [Concomitant]
  6. PROMETHAZINE [Concomitant]
  7. STOOL SOFTENER [Concomitant]

REACTIONS (2)
  - DRUG INEFFECTIVE [None]
  - FEELING ABNORMAL [None]
